FAERS Safety Report 19233393 (Version 6)
Quarter: 2022Q4

REPORT INFORMATION
  Report Type: Spontaneous
  Country: US (occurrence: US)
  Receive Date: 20210507
  Receipt Date: 20221103
  Transmission Date: 20230112
  Serious: No
  Sender: FDA-Public Use
  Company Number: US-PFIZER INC-2020364783

PATIENT
  Age: 70 Year
  Sex: Female

DRUGS (3)
  1. XELJANZ [Suspect]
     Active Substance: TOFACITINIB CITRATE
     Indication: Rheumatoid arthritis
     Dosage: 5 MG, 2X/DAY
     Route: 048
     Dates: start: 20201201
  2. XELJANZ [Suspect]
     Active Substance: TOFACITINIB CITRATE
     Indication: Morphoea
     Dosage: 5 MG (SOMETIMES ONCE A DAY OR TWICE A DAY)
     Route: 048
     Dates: start: 20201201
  3. ESTRADIOL [Concomitant]
     Active Substance: ESTRADIOL
     Indication: Oophorectomy
     Dosage: UNK

REACTIONS (4)
  - Product dose omission issue [Unknown]
  - Fatigue [Unknown]
  - Arthralgia [Recovering/Resolving]
  - Drug ineffective for unapproved indication [Unknown]

NARRATIVE: CASE EVENT DATE: 20200101
